FAERS Safety Report 8285378-3 (Version None)
Quarter: 2012Q2

REPORT INFORMATION
  Report Type: 
  Country: None (occurrence: None)
  Receive Date: 20120413
  Receipt Date: 20111220
  Transmission Date: 20120825
  Serious: No
  Sender: FDA-Public Use
  Company Number: US-ASTRAZENECA-2011SE40583

PATIENT
  Age: 37 Year
  Sex: Male

DRUGS (2)
  1. NEXIUM [Suspect]
     Route: 048
  2. SEROQUEL [Suspect]
     Route: 048

REACTIONS (6)
  - WEIGHT INCREASED [None]
  - VOMITING [None]
  - BACK DISORDER [None]
  - CARDIAC DISCOMFORT [None]
  - HEPATIC PAIN [None]
  - GASTROOESOPHAGEAL REFLUX DISEASE [None]
